FAERS Safety Report 10610574 (Version 1)
Quarter: 2014Q4

REPORT INFORMATION
  Report Type: Spontaneous
  Country: NL (occurrence: NL)
  Receive Date: 20141126
  Receipt Date: 20141126
  Transmission Date: 20150529
  Serious: Yes (Hospitalization)
  Sender: FDA-Public Use
  Company Number: PHHY2014NL154147

PATIENT
  Age: 23 Year
  Sex: Female

DRUGS (3)
  1. ETHINYLESTRADIOL+LEVONORGESTREL SANDOZ [Suspect]
     Active Substance: ETHINYL ESTRADIOL\LEVONORGESTREL
     Route: 065
  2. ETHINYLESTRADIOL+LEVONORGESTREL SANDOZ [Suspect]
     Active Substance: ETHINYL ESTRADIOL\LEVONORGESTREL
     Indication: PRODUCT USED FOR UNKNOWN INDICATION
     Route: 065
  3. ETHINYLESTRADIOL+LEVONORGESTREL SANDOZ [Suspect]
     Active Substance: ETHINYL ESTRADIOL\LEVONORGESTREL
     Route: 065

REACTIONS (3)
  - Seizure [Unknown]
  - Pain in extremity [Unknown]
  - Vaginal haemorrhage [Unknown]
